FAERS Safety Report 8371873-5 (Version None)
Quarter: 2012Q2

REPORT INFORMATION
  Report Type: 
  Country: None (occurrence: None)
  Receive Date: 20120518
  Receipt Date: 20120514
  Transmission Date: 20120825
  Serious: Yes (Other)
  Sender: FDA-Public Use
  Company Number: BE-ROCHE-1069048

PATIENT
  Age: 50 Year
  Sex: Female

DRUGS (1)
  1. AVASTIN [Suspect]
     Indication: PRODUCT USED FOR UNKNOWN INDICATION

REACTIONS (3)
  - FRACTURED SACRUM [None]
  - FRACTURE [None]
  - LUMBAR VERTEBRAL FRACTURE [None]
